FAERS Safety Report 11166500 (Version 1)
Quarter: 2015Q2

REPORT INFORMATION
  Report Type: Spontaneous
  Country: ZA (occurrence: ZA)
  Receive Date: 20150605
  Receipt Date: 20150605
  Transmission Date: 20150821
  Serious: Yes (Death, Other)
  Sender: FDA-Public Use
  Company Number: ZA-009507513-1506ZAF000263

PATIENT
  Age: 60 Year
  Sex: Female

DRUGS (3)
  1. DIPRIVAN [Suspect]
     Active Substance: PROPOFOL
  2. ULTIVA [Suspect]
     Active Substance: REMIFENTANIL HYDROCHLORIDE
  3. ESMERON [Suspect]
     Active Substance: ROCURONIUM BROMIDE

REACTIONS (7)
  - Hypotension [Fatal]
  - Acute kidney injury [Unknown]
  - Bronchospasm [Unknown]
  - Anaphylactic reaction [Fatal]
  - Flushing [Unknown]
  - Brain stem infarction [Fatal]
  - Brain injury [Fatal]
